FAERS Safety Report 7999362-8 (Version None)
Quarter: 2011Q4

REPORT INFORMATION
  Report Type: 
  Country: None (occurrence: None)
  Receive Date: 20111221
  Receipt Date: 20071129
  Transmission Date: 20120403
  Serious: Yes (Other)
  Sender: FDA-Public Use
  Company Number: PHHY2007MX07113

PATIENT
  Age: 6 Year
  Sex: Female

DRUGS (1)
  1. TRILEPTAL [Suspect]
     Indication: EPILEPSY
     Dosage: 6 ML, QD
     Route: 048
     Dates: start: 20060801

REACTIONS (3)
  - CONVULSION [None]
  - VIITH NERVE PARALYSIS [None]
  - PARALYSIS [None]
